FAERS Safety Report 5575402-0 (Version None)
Quarter: 2007Q4

REPORT INFORMATION
  Report Type: 
  Country: None (occurrence: None)
  Receive Date: 20071227
  Receipt Date: 20071204
  Transmission Date: 20080405
  Serious: No
  Sender: FDA-Public Use
  Company Number: US-BOEHRINGER INGELHEIM PHARMACEUTICALS, INC.-2007-BP-25604BP

PATIENT
  Sex: Male

DRUGS (7)
  1. MIRAPEX [Suspect]
     Indication: NEUROPATHY
     Route: 048
     Dates: start: 20070901
  2. VASOTEC [Concomitant]
  3. LOPRESSOR [Concomitant]
  4. ASPIRIN [Concomitant]
  5. TRILEPTAL [Concomitant]
  6. ELAVIL [Concomitant]
  7. PERCOCET [Concomitant]

REACTIONS (1)
  - DYSPNOEA EXERTIONAL [None]
